FAERS Safety Report 6205949-5 (Version None)
Quarter: 2009Q2

REPORT INFORMATION
  Report Type: 
  Country: None (occurrence: None)
  Receive Date: 20090527
  Receipt Date: 20090527
  Transmission Date: 20091009
  Serious: Yes (Other)
  Sender: FDA-Public Use
  Company Number: None

PATIENT
  Sex: Male
  Weight: 83.9154 kg

DRUGS (1)
  1. COPAXONE [Suspect]
     Indication: MULTIPLE SCLEROSIS
     Dosage: 30 DAILY S/C
     Route: 058
     Dates: start: 20090101

REACTIONS (2)
  - DIAPHRAGMATIC DISORDER [None]
  - MULTIPLE SCLEROSIS RELAPSE [None]
